FAERS Safety Report 8293977-8 (Version None)
Quarter: 2012Q2

REPORT INFORMATION
  Report Type: 
  Country: None (occurrence: None)
  Receive Date: 20120413
  Receipt Date: 20120329
  Transmission Date: 20120825
  Serious: Yes (Life-Threatening, Hospitalization, Other)
  Sender: FDA-Public Use
  Company Number: 2012SGN00147

PATIENT
  Age: 51 Year
  Sex: Female

DRUGS (1)
  1. ADCETRIS [Suspect]
     Indication: HODGKIN'S DISEASE RECURRENT
     Dosage: 1.8 MG/KG, UNK

REACTIONS (3)
  - VASCULITIS [None]
  - HAEMORRHAGIC STROKE [None]
  - NEUROPATHY PERIPHERAL [None]
